FAERS Safety Report 8397823-3 (Version None)
Quarter: 2012Q2

REPORT INFORMATION
  Report Type: 
  Country: None (occurrence: None)
  Receive Date: 20120531
  Receipt Date: 20120524
  Transmission Date: 20120825
  Serious: Yes (Other)
  Sender: FDA-Public Use
  Company Number: US-JNJFOC-20120519015

PATIENT
  Sex: Female
  Weight: 86.18 kg

DRUGS (5)
  1. ORTHO EVRA [Suspect]
     Indication: CONTRACEPTION
     Route: 062
     Dates: start: 20110501, end: 20110501
  2. MULTI-VITAMINS [Concomitant]
     Route: 065
  3. CYMBALTA [Concomitant]
     Indication: DEPRESSION
     Route: 048
  4. ANTITHYROID DRUG, UNSPECIFIED [Concomitant]
     Indication: THYROID DISORDER
     Route: 048
  5. ADDERALL XR 10 [Concomitant]
     Route: 048

REACTIONS (5)
  - APPLICATION SITE PRURITUS [None]
  - UPPER LIMB FRACTURE [None]
  - SKIN IRRITATION [None]
  - PRODUCT QUALITY ISSUE [None]
  - WRONG TECHNIQUE IN DRUG USAGE PROCESS [None]
